FAERS Safety Report 7984303-X (Version None)
Quarter: 2011Q4

REPORT INFORMATION
  Report Type: 
  Country: None (occurrence: None)
  Receive Date: 20111216
  Receipt Date: 20111209
  Transmission Date: 20120403
  Serious: Yes (Hospitalization)
  Sender: FDA-Public Use
  Company Number: HR-GENZYME-CAMP-1001966

PATIENT
  Sex: Female
  Weight: 62 kg

DRUGS (4)
  1. ALEMTUZUMAB [Suspect]
     Indication: MULTIPLE SCLEROSIS
     Dosage: UNK
     Dates: start: 20101025, end: 20101029
  2. ALEMTUZUMAB [Suspect]
  3. REBIF [Concomitant]
     Indication: MULTIPLE SCLEROSIS
     Dosage: 8.8 MCG THEN UPTITRATED PER PROTOCOL
     Route: 058
     Dates: start: 20080909, end: 20100608
  4. METHYLPREDNISOLONE [Concomitant]
     Indication: MULTIPLE SCLEROSIS
     Dosage: 1.0 G, QD
     Dates: start: 20101025, end: 20101027

REACTIONS (1)
  - ANTI-GLOMERULAR BASEMENT MEMBRANE ANTIBODY POSITIVE [None]
